FAERS Safety Report 5364830-4 (Version None)
Quarter: 2007Q2

REPORT INFORMATION
  Report Type: 
  Country: None (occurrence: None)
  Receive Date: 20070621
  Receipt Date: 20070614
  Transmission Date: 20071010
  Serious: Yes (Other)
  Sender: FDA-Public Use
  Company Number: PHEH2007US08844

PATIENT
  Age: 78 Year
  Sex: Female

DRUGS (1)
  1. DIOVAN HCT [Suspect]
     Indication: HYPERTENSION
     Dosage: 160/25 MG QD
     Route: 048

REACTIONS (2)
  - CARDIAC PACEMAKER INSERTION [None]
  - HEART RATE DECREASED [None]
